FAERS Safety Report 10335775 (Version 2)
Quarter: 2014Q3

REPORT INFORMATION
  Report Type: Report from Study
  Country: TW (occurrence: TW)
  Receive Date: 20140723
  Receipt Date: 20140929
  Transmission Date: 20150326
  Serious: Yes (Hospitalization, Other)
  Sender: FDA-Public Use
  Company Number: TW-ABBVIE-14K-153-1260395-00

PATIENT
  Age: 85 Year
  Sex: Female
  Weight: 50 kg

DRUGS (7)
  1. PLAQUENIL [Concomitant]
     Active Substance: HYDROXYCHLOROQUINE SULFATE
     Indication: RHEUMATOID ARTHRITIS
     Route: 048
     Dates: start: 20140602, end: 20140714
  2. FOSAMAX [Concomitant]
     Active Substance: ALENDRONATE SODIUM
     Indication: RHEUMATOID ARTHRITIS
     Route: 048
     Dates: start: 20140602, end: 20140714
  3. SALAZOPYRIN [Concomitant]
     Active Substance: SULFASALAZINE
     Indication: RHEUMATOID ARTHRITIS
     Route: 048
     Dates: start: 20140602, end: 20140714
  4. METHOTREXATE [Concomitant]
     Active Substance: METHOTREXATE
     Indication: RHEUMATOID ARTHRITIS
     Route: 048
     Dates: start: 20140602, end: 20140714
  5. DONISON [Concomitant]
     Indication: RHEUMATOID ARTHRITIS
     Route: 048
     Dates: start: 20140602, end: 20140714
  6. FOLACIN [Concomitant]
     Active Substance: FOLIC ACID
     Indication: RHEUMATOID ARTHRITIS
     Route: 048
     Dates: start: 20140602, end: 20140714
  7. HUMIRA [Suspect]
     Active Substance: ADALIMUMAB
     Indication: RHEUMATOID ARTHRITIS
     Route: 058
     Dates: start: 20080602, end: 20140623

REACTIONS (12)
  - Platelet count abnormal [Recovered/Resolved]
  - Vertebroplasty [Unknown]
  - Joint ankylosis [Unknown]
  - Supraventricular extrasystoles [Unknown]
  - Arteriosclerosis [Unknown]
  - White blood cell count abnormal [Recovered/Resolved]
  - Myocardial infarction [Unknown]
  - Spinal compression fracture [Unknown]
  - Sinus tachycardia [Unknown]
  - Spinal osteoarthritis [Unknown]
  - Mouth haemorrhage [Recovered/Resolved]
  - Scoliosis [Unknown]

NARRATIVE: CASE EVENT DATE: 20140707
